FAERS Safety Report 9477463 (Version 2)
Quarter: 2013Q4

REPORT INFORMATION
  Report Type: Spontaneous
  Country: DE (occurrence: DE)
  Receive Date: 20130827
  Receipt Date: 20131024
  Transmission Date: 20140711
  Serious: Yes (Other)
  Sender: FDA-Public Use
  Company Number: DE-ROCHE-1266598

PATIENT
  Sex: 0

DRUGS (1)
  1. ZELBORAF [Suspect]
     Indication: METASTATIC MALIGNANT MELANOMA
     Route: 048
     Dates: start: 20120714

REACTIONS (6)
  - Chest discomfort [Unknown]
  - Haematochezia [Recovered/Resolved]
  - Renal pain [Recovered/Resolved]
  - Angina pectoris [Recovered/Resolved]
  - Arthritis [Recovered/Resolved]
  - Arthralgia [Unknown]
